FAERS Safety Report 5281591-8 (Version None)
Quarter: 2007Q1

REPORT INFORMATION
  Report Type: 
  Country: None (occurrence: None)
  Receive Date: 20061222
  Receipt Date: 20060915
  Transmission Date: 20070707
  Serious: Yes (Other)
  Sender: FDA-Public Use
  Company Number: 2006-0010235

PATIENT
  Age: 28 Year
  Sex: Male

DRUGS (1)
  1. VIREAD [Suspect]

REACTIONS (1)
  - BLOOD CREATININE INCREASED [None]
